FAERS Safety Report 7728639-6 (Version None)
Quarter: 2011Q3

REPORT INFORMATION
  Report Type: 
  Country: None (occurrence: None)
  Receive Date: 20110831
  Receipt Date: 20110831
  Transmission Date: 20111222
  Serious: Yes (Life-Threatening, Hospitalization)
  Sender: FDA-Public Use
  Company Number: None

PATIENT
  Age: 66 Year
  Sex: Male
  Weight: 57.8 kg

DRUGS (1)
  1. MIDAZOLAM HCL [Suspect]
     Indication: SEDATIVE THERAPY
     Dosage: 4 MG ONCE IV
     Route: 042
     Dates: start: 20110812, end: 20110812

REACTIONS (4)
  - HYPOTENSION [None]
  - DRUG EFFECT INCREASED [None]
  - POTENTIATING DRUG INTERACTION [None]
  - SEDATION [None]
